FAERS Safety Report 24851018 (Version 1)
Quarter: 2025Q1

REPORT INFORMATION
  Report Type: Spontaneous
  Country: PL (occurrence: PL)
  Receive Date: 20250116
  Receipt Date: 20250116
  Transmission Date: 20250409
  Serious: Yes (Hospitalization, Other)
  Sender: NOVARTIS
  Company Number: PL-002147023-NVSC2025PL005436

PATIENT
  Age: 39 Year
  Sex: Female

DRUGS (4)
  1. IMATINIB [Suspect]
     Active Substance: IMATINIB
     Indication: Chronic myeloid leukaemia
     Dosage: 400 MG, QD (DAILY)
     Route: 065
  2. DASATINIB [Suspect]
     Active Substance: DASATINIB
     Indication: Product used for unknown indication
     Dosage: 100 MG, QD (DAILY)
     Route: 065
     Dates: start: 202308
  3. DASATINIB [Suspect]
     Active Substance: DASATINIB
     Dosage: 50 MG, QD (DAILY)
     Route: 065
  4. PREDNISONE [Concomitant]
     Active Substance: PREDNISONE
     Indication: Product used for unknown indication
     Dosage: 20 MG, QD (DAILY)
     Route: 065

REACTIONS (8)
  - Platelet count decreased [Unknown]
  - Blood disorder [Unknown]
  - Neutropenia [Unknown]
  - Thrombocytopenic purpura [Unknown]
  - Pancytopenia [Unknown]
  - Therapy partial responder [Unknown]
  - Anaemia [Unknown]
  - Therapy non-responder [Unknown]

NARRATIVE: CASE EVENT DATE: 20230801
